FAERS Safety Report 7729951-7 (Version None)
Quarter: 2011Q3

REPORT INFORMATION
  Report Type: 
  Country: None (occurrence: None)
  Receive Date: 20110906
  Receipt Date: 20110903
  Transmission Date: 20111222
  Serious: Yes (Other)
  Sender: FDA-Public Use
  Company Number: US-PFIZER INC-2011206158

PATIENT
  Sex: Female
  Weight: 104.31 kg

DRUGS (4)
  1. ALPRAZOLAM [Suspect]
     Indication: ANXIETY
     Dosage: UNK, 1X/DAY
     Route: 048
     Dates: start: 20110901, end: 20110903
  2. ALPRAZOLAM [Suspect]
     Indication: SLEEP DISORDER
  3. PERCOCET [Concomitant]
     Indication: PAIN
     Dosage: UNK
  4. RITALIN [Concomitant]
     Indication: ATTENTION DEFICIT/HYPERACTIVITY DISORDER
     Dosage: UNK

REACTIONS (3)
  - ANXIETY [None]
  - PANIC ATTACK [None]
  - INSOMNIA [None]
